FAERS Safety Report 11422855 (Version 1)
Quarter: 2015Q3

REPORT INFORMATION
  Report Type: Spontaneous
  Country: US (occurrence: None)
  Receive Date: 20150826
  Receipt Date: 20150826
  Transmission Date: 20151125
  Serious: Yes (Other)
  Sender: FDA-Public Use
  Company Number: None

PATIENT

DRUGS (1)
  1. LEVETIRACETAM 750 MG BLUE POINT LAB AND/OR LUPIN BRAND [Suspect]
     Active Substance: LEVETIRACETAM

REACTIONS (2)
  - Circumstance or information capable of leading to medication error [None]
  - Intercepted drug dispensing error [None]

NARRATIVE: CASE EVENT DATE: 20150715
